FAERS Safety Report 5816445-9 (Version None)
Quarter: 2008Q3

REPORT INFORMATION
  Report Type: 
  Country: None (occurrence: None)
  Receive Date: 20080721
  Receipt Date: 20080516
  Transmission Date: 20090109
  Serious: No
  Sender: FDA-Public Use
  Company Number: US-BAUSCH-2008BL002243

PATIENT
  Age: 96 Year
  Sex: Female

DRUGS (6)
  1. MURO 128 2% OPHTHALMIC SOLUTION [Suspect]
     Indication: DRUG USE FOR UNKNOWN INDICATION
     Route: 047
     Dates: start: 20080424
  2. ADVANCED EYE RELIEF/REDNESS LUBRICANT EYE DROPS [Suspect]
     Indication: OCULAR HYPERAEMIA
     Route: 047
     Dates: start: 20080515, end: 20080515
  3. ADVANCED EYE RELIEF/REDNESS LUBRICANT EYE DROPS [Suspect]
     Indication: EYE IRRITATION
     Route: 047
     Dates: start: 20080515, end: 20080515
  4. OPCON-A [Suspect]
     Indication: EYE IRRITATION
     Route: 047
     Dates: start: 20080516, end: 20080516
  5. BETOPTIC-S /SCH/ [Concomitant]
     Route: 047
  6. DIOVAN [Concomitant]

REACTIONS (6)
  - ERYTHEMA OF EYELID [None]
  - EYE IRRITATION [None]
  - EYE PAIN [None]
  - EYELID IRRITATION [None]
  - MEDICATION ERROR [None]
  - OCULAR HYPERAEMIA [None]
